FAERS Safety Report 6145239-2 (Version None)
Quarter: 2009Q2

REPORT INFORMATION
  Report Type: 
  Country: None (occurrence: None)
  Receive Date: 20090401
  Receipt Date: 20090324
  Transmission Date: 20091009
  Serious: Yes (Death, Life-Threatening, Other)
  Sender: FDA-Public Use
  Company Number: 2009US000898

PATIENT
  Age: 12 Year
  Sex: Male
  Weight: 29.4 kg

DRUGS (24)
  1. AMBISOME [Suspect]
     Indication: FEBRILE NEUTROPENIA
     Dosage: 100 MG, UID/QD, IV NOS, 150 MG, UID/QD, IV NOS, 100 MG, UID/QD, IV NOS
     Route: 042
     Dates: start: 20070821, end: 20070827
  2. AMBISOME [Suspect]
     Indication: FEBRILE NEUTROPENIA
     Dosage: 100 MG, UID/QD, IV NOS, 150 MG, UID/QD, IV NOS, 100 MG, UID/QD, IV NOS
     Route: 042
     Dates: start: 20070828, end: 20070904
  3. AMBISOME [Suspect]
     Indication: FEBRILE NEUTROPENIA
     Dosage: 100 MG, UID/QD, IV NOS, 150 MG, UID/QD, IV NOS, 100 MG, UID/QD, IV NOS
     Route: 042
     Dates: start: 20070905
  4. PROGRAF [Suspect]
     Indication: DRUG USE FOR UNKNOWN INDICATION
     Dosage: 0.6 MG, UID/QD, IV NOS
     Route: 042
     Dates: start: 20070808, end: 20070829
  5. IMMUNE GLOBULIN INTRAVENOUS (HUMAN) [Concomitant]
  6. VICCLOX MEIJI (ACICLOVIR) [Concomitant]
  7. SOLU-CORTEF [Concomitant]
  8. CHLOR-TRIMETON (PHENYLPROPANOLAMINE HYDROCHLORIFE, CHLORPHENAMINE MALE [Concomitant]
  9. FUTHAN (NAFOMASTAT MESILATE) [Concomitant]
  10. NEUART (ANTITHROMBIN III) [Concomitant]
  11. FUNGUARD (MICAFUNGIN) INJECTION [Concomitant]
  12. MEROPEN (MEROPENEM TRIHYDRATE) [Concomitant]
  13. MINOCYCLINE HYDROCHLORIDE [Concomitant]
  14. MAXIPIME [Concomitant]
  15. PIPERACILLIN SODIUM AND TAZOBACTAM SODIUM [Concomitant]
  16. OMEGACIN (BIAPENEM) [Concomitant]
  17. NEUTROGIN (LENOGRASTIM) [Concomitant]
  18. BROACT (CEFPIROME SULFATE) [Concomitant]
  19. VANCOMYCIN HYDROCHLORIDE [Concomitant]
  20. FOSMICIN-S (FOSFOMYCIN SODIUM) [Concomitant]
  21. ZYVOX [Concomitant]
  22. ALBUMIN (HUMAN) [Concomitant]
  23. TARGOCID [Concomitant]
  24. LEUKOPROL (MIRIMOSTIIM) [Concomitant]

REACTIONS (12)
  - ALANINE AMINOTRANSFERASE INCREASED [None]
  - ANAEMIA [None]
  - ASPARTATE AMINOTRANSFERASE INCREASED [None]
  - BLOOD BILIRUBIN INCREASED [None]
  - BLOOD CREATININE INCREASED [None]
  - BLOOD UREA INCREASED [None]
  - FEBRILE NEUTROPENIA [None]
  - FUNGAL INFECTION [None]
  - HYPOKALAEMIA [None]
  - HYPOMAGNESAEMIA [None]
  - PLATELET COUNT DECREASED [None]
  - WHITE BLOOD CELL COUNT DECREASED [None]
